FAERS Safety Report 7411280-2 (Version None)
Quarter: 2011Q2

REPORT INFORMATION
  Report Type: 
  Country: None (occurrence: None)
  Receive Date: 20110413
  Receipt Date: 20100514
  Transmission Date: 20111010
  Serious: Yes (Other)
  Sender: FDA-Public Use
  Company Number: US-BRISTOL-MYERS SQUIBB COMPANY-15106859

PATIENT
  Sex: Female

DRUGS (4)
  1. ERBITUX [Suspect]
  2. DECADRON [Concomitant]
     Indication: PREMEDICATION
     Route: 048
  3. BENADRYL [Concomitant]
     Indication: PREMEDICATION
  4. PEPCID [Concomitant]
     Indication: PREMEDICATION

REACTIONS (2)
  - HYPOTENSION [None]
  - DYSPNOEA [None]
